FAERS Safety Report 4675620-X (Version None)
Quarter: 2005Q2

REPORT INFORMATION
  Report Type: 
  Country: None (occurrence: None)
  Receive Date: 20050525
  Receipt Date: 20050510
  Transmission Date: 20051028
  Serious: Yes (Death, Hospitalization)
  Sender: FDA-Public Use
  Company Number: 2005-0008330

PATIENT
  Age: 34 Year
  Sex: Female

DRUGS (6)
  1. TENOFOVIR DISOPROXIL FUMARATE [Suspect]
     Indication: HIV INFECTION
     Dates: end: 20041208
  2. LAMIVUDINE [Suspect]
     Indication: HIV INFECTION
     Dates: end: 20041208
  3. STAVUDINE [Suspect]
     Indication: HIV INFECTION
     Dates: end: 20041208
  4. AMITRIPTYLINE [Concomitant]
  5. VITAMIN B COMPLEX CAP [Concomitant]
  6. DICLOFENAC SODIUM [Concomitant]

REACTIONS (6)
  - BLOOD GLUCOSE DECREASED [None]
  - GENERAL PHYSICAL HEALTH DETERIORATION [None]
  - LACTIC ACIDOSIS [None]
  - MITOCHONDRIAL TOXICITY [None]
  - NAUSEA [None]
  - VOMITING [None]
